FAERS Safety Report 6443981-7 (Version None)
Quarter: 2009Q4

REPORT INFORMATION
  Report Type: 
  Country: None (occurrence: None)
  Receive Date: 20091117
  Receipt Date: 20091117
  Transmission Date: 20100525
  Serious: Yes (Life-Threatening, Hospitalization, Disabling)
  Sender: FDA-Public Use
  Company Number: None

PATIENT
  Age: 71 Year
  Sex: Female
  Weight: 85.7 kg

DRUGS (3)
  1. CELEXA [Suspect]
     Indication: DEPRESSED MOOD
     Dosage: PO
     Route: 048
     Dates: start: 20091014, end: 20091108
  2. CELEXA [Suspect]
     Indication: RENAL FAILURE CHRONIC
     Dosage: PO
     Route: 048
     Dates: start: 20091014, end: 20091108
  3. LASIX [Suspect]
     Indication: HYPERTENSION
     Dosage: 40 MG TWICE A DAY PO
     Route: 048

REACTIONS (2)
  - INAPPROPRIATE ANTIDIURETIC HORMONE SECRETION [None]
  - RENAL FAILURE ACUTE [None]
